FAERS Safety Report 7710549-1 (Version None)
Quarter: 2011Q3

REPORT INFORMATION
  Report Type: 
  Country: None (occurrence: None)
  Receive Date: 20110825
  Receipt Date: 20110818
  Transmission Date: 20111222
  Serious: Yes (Other)
  Sender: FDA-Public Use
  Company Number: US-PFIZER INC-2007036378

PATIENT
  Sex: Female

DRUGS (2)
  1. NEURONTIN [Suspect]
     Indication: PAIN IN EXTREMITY
  2. NEURONTIN [Suspect]
     Indication: ARTHRALGIA
     Dates: start: 20000301

REACTIONS (6)
  - DRUG INEFFECTIVE FOR UNAPPROVED INDICATION [None]
  - SUICIDAL IDEATION [None]
  - HYPERTENSION [None]
  - THINKING ABNORMAL [None]
  - DEPRESSION [None]
  - MOOD SWINGS [None]
